FAERS Safety Report 7760960-8 (Version None)
Quarter: 2011Q3

REPORT INFORMATION
  Report Type: 
  Country: None (occurrence: None)
  Receive Date: 20110920
  Receipt Date: 20110916
  Transmission Date: 20111222
  Serious: Yes (Life-Threatening)
  Sender: FDA-Public Use
  Company Number: DK-BRISTOL-MYERS SQUIBB COMPANY-16068009

PATIENT
  Age: 32 Year
  Sex: Male

DRUGS (8)
  1. CYMBALTA [Suspect]
  2. ABILIFY [Suspect]
  3. PANTOPRAZOLE SODIUM [Concomitant]
  4. METOPROLOL SUCCINATE [Concomitant]
  5. CLOZAPINE [Suspect]
  6. DULOXETINE HYDROCHLORIDE [Suspect]
  7. BUPRENEX [Concomitant]
  8. SIMVASTATIN [Concomitant]

REACTIONS (2)
  - NEUROLEPTIC MALIGNANT SYNDROME [None]
  - PNEUMONIA [None]
